FAERS Safety Report 6172977-8 (Version None)
Quarter: 2009Q2

REPORT INFORMATION
  Report Type: 
  Country: None (occurrence: None)
  Receive Date: 20090430
  Receipt Date: 20090421
  Transmission Date: 20091009
  Serious: Yes (Other)
  Sender: FDA-Public Use
  Company Number: US-ABBOTT-09P-163-0569140-00

PATIENT
  Sex: Female
  Weight: 87.168 kg

DRUGS (12)
  1. HUMIRA [Suspect]
     Indication: RHEUMATOID ARTHRITIS
     Route: 058
     Dates: start: 20070101
  2. CALCITONIN [Concomitant]
     Indication: DRUG USE FOR UNKNOWN INDICATION
  3. CENTRUM SILVER [Concomitant]
     Indication: DRUG USE FOR UNKNOWN INDICATION
  4. COUMADIN [Concomitant]
     Indication: DRUG USE FOR UNKNOWN INDICATION
  5. DESPIRAMINE [Concomitant]
     Indication: DEPRESSION
     Route: 048
  6. COLACE [Concomitant]
     Indication: DRUG USE FOR UNKNOWN INDICATION
  7. HYDROXYTONE [Concomitant]
     Indication: DRUG USE FOR UNKNOWN INDICATION
  8. METHOTREXATE [Concomitant]
     Indication: DRUG USE FOR UNKNOWN INDICATION
  9. PREDNISONE [Concomitant]
     Indication: DRUG USE FOR UNKNOWN INDICATION
  10. RIGITINE [Concomitant]
     Indication: DRUG USE FOR UNKNOWN INDICATION
  11. VITAMIN B COMPLEX CAP [Concomitant]
     Indication: DRUG USE FOR UNKNOWN INDICATION
  12. VITAMIN D [Concomitant]
     Indication: DRUG USE FOR UNKNOWN INDICATION

REACTIONS (7)
  - INJECTION SITE HAEMORRHAGE [None]
  - INJECTION SITE PAIN [None]
  - MUSCULOSKELETAL STIFFNESS [None]
  - OSTEOARTHRITIS [None]
  - PAIN [None]
  - SPINAL FRACTURE [None]
  - SPINAL OSTEOARTHRITIS [None]
